FAERS Safety Report 8583799-2 (Version None)
Quarter: 2012Q3

REPORT INFORMATION
  Report Type: 
  Country: None (occurrence: None)
  Receive Date: 20120810
  Receipt Date: 20120730
  Transmission Date: 20120928
  Serious: Yes (Other)
  Sender: FDA-Public Use
  Company Number: JP-009507513-1207JPN012694

PATIENT

DRUGS (15)
  1. LOSARTAN POTASSIUM [Concomitant]
     Indication: HYPERTENSION
     Route: 048
  2. PREDNISOLONE [Concomitant]
     Route: 048
     Dates: start: 20120704
  3. PEG-INTRON [Suspect]
     Indication: HEPATITIS C
     Dosage: 1.4MCG/KG/WEEK
     Route: 058
     Dates: start: 20120524
  4. AMLODIPINE BESYLATE [Concomitant]
     Indication: HYPERTENSION
     Route: 048
  5. VOLTAREN-XR [Concomitant]
     Indication: PROPHYLAXIS
     Dosage: 37.5MG/DAY,AS NEEDED
     Route: 048
     Dates: start: 20120524
  6. MYSER (DIFLUPREDNATE) [Concomitant]
     Indication: SKIN DISORDER
     Route: 061
     Dates: start: 20120528, end: 20120618
  7. XYZAL [Concomitant]
     Indication: PROPHYLAXIS
     Route: 048
     Dates: start: 20120524
  8. PREDNISOLONE [Concomitant]
     Route: 048
     Dates: start: 20120602
  9. PREDNISOLONE [Concomitant]
     Route: 048
     Dates: start: 20120609
  10. PREDNISOLONE [Concomitant]
     Route: 048
     Dates: start: 20120620
  11. TELAVIC [Suspect]
     Route: 048
     Dates: start: 20120619
  12. PREDNISOLONE [Concomitant]
     Route: 048
     Dates: start: 20120616
  13. TELAVIC [Suspect]
     Indication: HEPATITIS C
     Route: 048
     Dates: start: 20120524, end: 20120618
  14. REBETOL [Suspect]
     Indication: HEPATITIS C
     Route: 048
     Dates: start: 20120524
  15. PREDNISOLONE [Concomitant]
     Indication: SKIN DISORDER
     Route: 048
     Dates: start: 20120526, end: 20120601

REACTIONS (1)
  - DRUG ERUPTION [None]
